FAERS Safety Report 11801184 (Version 2)
Quarter: 2015Q4

REPORT INFORMATION
  Report Type: Report from Study
  Country: MX (occurrence: MX)
  Receive Date: 20151204
  Receipt Date: 20151216
  Transmission Date: 20160305
  Serious: Yes (Death)
  Sender: FDA-Public Use
  Company Number: MX-ROCHE-1672612

PATIENT
  Age: 19 Year
  Sex: Female

DRUGS (2)
  1. AVASTIN [Suspect]
     Active Substance: BEVACIZUMAB
     Indication: GLIOBLASTOMA MULTIFORME
     Dosage: 4 CYCLES.
     Route: 042
     Dates: start: 201408
  2. IRINOTECAN [Concomitant]
     Active Substance: IRINOTECAN
     Indication: GLIOBLASTOMA MULTIFORME
     Dosage: EVERY 15 DAYS, ADMINISTERED 4 CYCLES
     Route: 042

REACTIONS (3)
  - Neoplasm progression [Fatal]
  - Drug ineffective [Unknown]
  - Disease progression [Not Recovered/Not Resolved]
